FAERS Safety Report 23097976 (Version 1)
Quarter: 2023Q4

REPORT INFORMATION
  Report Type: Spontaneous
  Country: US (occurrence: None)
  Receive Date: 20231020
  Receipt Date: 20231020
  Transmission Date: 20240110
  Serious: Yes (Hospitalization)
  Sender: FDA-Public Use
  Company Number: None

PATIENT
  Age: 70 Year
  Sex: Male

DRUGS (2)
  1. BEVACIZUMAB-BVZR [Suspect]
     Active Substance: BEVACIZUMAB-BVZR
     Dates: start: 20230112, end: 20230112
  2. ATEZOLIZUMAB [Suspect]
     Active Substance: ATEZOLIZUMAB
     Dates: start: 20230112, end: 20230112

REACTIONS (3)
  - Diarrhoea [None]
  - Vomiting [None]
  - Condition aggravated [None]

NARRATIVE: CASE EVENT DATE: 20230124
